FAERS Safety Report 20221612 (Version 1)
Quarter: 2021Q4

REPORT INFORMATION
  Report Type: Report from Study
  Country: US (occurrence: US)
  Receive Date: 20211223
  Receipt Date: 20211223
  Transmission Date: 20220303
  Serious: Yes (Hospitalization, Other)
  Sender: FDA-Public Use
  Company Number: US-GILEAD-2021-0562064

PATIENT
  Sex: Male

DRUGS (10)
  1. AZTREONAM LYSINE [Suspect]
     Active Substance: AZTREONAM LYSINE
     Indication: Cystic fibrosis lung
     Dosage: 75 MG, TID ALTERNATING MONTHS ON AND OFF WITH VANCOMICIN
     Route: 055
  2. CREON [Concomitant]
     Active Substance: PANCRELIPASE AMYLASE\PANCRELIPASE LIPASE\PANCRELIPASE PROTEASE
     Dosage: UNK
  3. AZITHROMYCIN [Concomitant]
     Active Substance: AZITHROMYCIN
     Dosage: UNK
  4. TOBRAMYCIN [Concomitant]
     Active Substance: TOBRAMYCIN
     Dosage: UNK
  5. ALBUTEROL SULFATE [Concomitant]
     Active Substance: ALBUTEROL SULFATE
     Dosage: UNK
  6. VITAMIN D NOS [Concomitant]
     Active Substance: VITAMIN D NOS
     Dosage: UNK
  7. PULMOZYME [Concomitant]
     Active Substance: DORNASE ALFA
     Dosage: UNK
  8. CYPROHEPTADINE [Concomitant]
     Active Substance: CYPROHEPTADINE
     Dosage: UNK
  9. PREVACID [Concomitant]
     Active Substance: LANSOPRAZOLE
     Dosage: UNK
  10. SODIUM CHLORIDE [Concomitant]
     Active Substance: SODIUM CHLORIDE
     Dosage: UNK

REACTIONS (1)
  - Cystic fibrosis [Not Recovered/Not Resolved]
